FAERS Safety Report 12271434 (Version 2)
Quarter: 2016Q2

REPORT INFORMATION
  Report Type: Spontaneous
  Country: IT (occurrence: IT)
  Receive Date: 20160415
  Receipt Date: 20160517
  Transmission Date: 20160815
  Serious: Yes (Other)
  Sender: FDA-Public Use
  Company Number: IT-TEVA-650921ACC

PATIENT
  Age: 77 Year
  Sex: Male

DRUGS (1)
  1. TEVAGRASTIM - 30 MUI (300MCG/0,5ML) SOLUZ INIETTABILE O PER INFUSIONE [Suspect]
     Active Substance: FILGRASTIM
     Indication: PRODUCT USED FOR UNKNOWN INDICATION
     Dosage: CYCLICAL
     Route: 058
     Dates: start: 20160126, end: 20160129

REACTIONS (1)
  - Chest pain [Unknown]

NARRATIVE: CASE EVENT DATE: 20160129
